FAERS Safety Report 6337615-X (Version None)
Quarter: 2009Q3

REPORT INFORMATION
  Report Type: 
  Country: None (occurrence: None)
  Receive Date: 20090902
  Receipt Date: 20090826
  Transmission Date: 20100115
  Serious: Yes (Other)
  Sender: FDA-Public Use
  Company Number: CA-BAYER-200931146NA

PATIENT
  Sex: Female

DRUGS (1)
  1. MIRENA [Suspect]
     Indication: CONTRACEPTION
     Dosage: AS USED: 20 ?G
     Route: 015
     Dates: start: 20081126

REACTIONS (11)
  - ALOPECIA [None]
  - ANAEMIA [None]
  - ANXIETY [None]
  - CONSTIPATION [None]
  - DEPRESSION [None]
  - DIZZINESS [None]
  - IMPAIRED WORK ABILITY [None]
  - INSOMNIA [None]
  - MENORRHAGIA [None]
  - MIGRAINE [None]
  - WEIGHT LOSS POOR [None]
